FAERS Safety Report 9147937 (Version 1)
Quarter: 2013Q1

REPORT INFORMATION
  Report Type: Spontaneous
  Country: US (occurrence: US)
  Receive Date: 20130228
  Receipt Date: 20130228
  Transmission Date: 20140127
  Serious: Yes (Hospitalization, Other)
  Sender: FDA-Public Use
  Company Number: US-RB-050444-13

PATIENT
  Sex: Female

DRUGS (1)
  1. SUBOXONE FILM [Suspect]
     Indication: PRODUCT USED FOR UNKNOWN INDICATION
     Dosage: SUBOXONE FILM; 4-8 MG DAILY
     Route: 060
     Dates: start: 2013, end: 20130214

REACTIONS (3)
  - Fall [Recovered/Resolved]
  - Sternal fracture [Unknown]
  - Non-cardiac chest pain [Not Recovered/Not Resolved]
